FAERS Safety Report 17687884 (Version 1)
Quarter: 2020Q2

REPORT INFORMATION
  Report Type: Spontaneous
  Country: US (occurrence: US)
  Receive Date: 20200421
  Receipt Date: 20200421
  Transmission Date: 20200714
  Serious: No
  Sender: FDA-Public Use
  Company Number: US-SA-2020SA103679

PATIENT
  Sex: Female

DRUGS (7)
  1. LEVOTHYROXIN [Concomitant]
     Active Substance: LEVOTHYROXINE
  2. CARVEDILOL. [Concomitant]
     Active Substance: CARVEDILOL
  3. OLMESARTAN MEDOXOMIL. [Concomitant]
     Active Substance: OLMESARTAN MEDOXOMIL
  4. BUSPIRONE [Concomitant]
     Active Substance: BUSPIRONE HYDROCHLORIDE
  5. DOXYCYCLIN AL [DOXYCYCLINE HYDROCHLORIDE] [Concomitant]
  6. EZETIMIBE. [Concomitant]
     Active Substance: EZETIMIBE
  7. DUPIXENT [Suspect]
     Active Substance: DUPILUMAB
     Indication: DERMATITIS ATOPIC
     Dosage: 300 MG
     Route: 058
     Dates: start: 20190511

REACTIONS (1)
  - Injection site rash [Not Recovered/Not Resolved]
